FAERS Safety Report 4653472-1 (Version None)
Quarter: 2005Q2

REPORT INFORMATION
  Report Type: 
  Country: None (occurrence: None)
  Receive Date: 20050505
  Receipt Date: 20050422
  Transmission Date: 20051028
  Serious: Yes (Hospitalization)
  Sender: FDA-Public Use
  Company Number: PL-GLAXOSMITHKLINE-B0379041A

PATIENT
  Age: 56 Year
  Sex: Male
  Weight: 67.5 kg

DRUGS (2)
  1. REQUIP [Suspect]
     Indication: PARKINSON'S DISEASE
     Dosage: 16MG PER DAY
     Route: 048
  2. ATENOLOL [Concomitant]
     Dosage: 12.5MG PER DAY
     Dates: start: 20040830, end: 20050413

REACTIONS (4)
  - ANGINA PECTORIS [None]
  - CHEST PAIN [None]
  - GASTRITIS [None]
  - GASTROENTERITIS HELICOBACTER [None]
